FAERS Safety Report 4331041-0 (Version None)
Quarter: 2004Q1

REPORT INFORMATION
  Report Type: 
  Country: None (occurrence: None)
  Receive Date: 20040331
  Receipt Date: 20040316
  Transmission Date: 20041129
  Serious: Yes (Death)
  Sender: FDA-Public Use
  Company Number: US-JNJFOC-20031202022

PATIENT
  Age: 33 Year
  Sex: Female
  Weight: 83.9154 kg

DRUGS (2)
  1. REMICADE [Suspect]
     Indication: CROHN'S DISEASE
     Dosage: RECEIVED APPROXIMATELY 5 DOSES SINCE 2001
     Dates: start: 20010101
  2. OXYCONTIN [Suspect]
     Indication: DRUG USE FOR UNKNOWN INDICATION

REACTIONS (5)
  - COMPLETED SUICIDE [None]
  - CROHN'S DISEASE [None]
  - DISEASE RECURRENCE [None]
  - DRUG ABUSER [None]
  - OVERDOSE [None]
